FAERS Safety Report 5968107-5 (Version None)
Quarter: 2008Q4

REPORT INFORMATION
  Report Type: 
  Country: None (occurrence: None)
  Receive Date: 20081126
  Receipt Date: 20081118
  Transmission Date: 20090506
  Serious: Yes (Death, Hospitalization)
  Sender: FDA-Public Use
  Company Number: US-ROCHE-594325

PATIENT
  Sex: Male
  Weight: 136.1 kg

DRUGS (9)
  1. XELODA [Suspect]
     Indication: RECTAL CANCER
     Route: 048
     Dates: start: 20080915, end: 20081013
  2. METFORMIN HCL [Concomitant]
     Route: 048
  3. PRILOSEC [Concomitant]
     Route: 048
  4. METOPROLOL TARTRATE [Concomitant]
     Indication: HYPERTENSION
     Route: 048
  5. GLIMEPIRIDE [Concomitant]
     Route: 048
  6. DICLOFENAC SODIUM [Concomitant]
     Indication: ARTHRITIS
     Route: 048
  7. ADVAIR HFA [Concomitant]
     Dosage: DOSE: ONE PUFF TWICE A DAY
  8. INSULIN [Concomitant]
     Dosage: DRUG: SLIDING SCALE REGULAR INSULIN
  9. AMBIEN [Concomitant]
     Dosage: DOSE: 5 MG QHS AS NEEDED

REACTIONS (7)
  - CARDIO-RESPIRATORY ARREST [None]
  - DEHYDRATION [None]
  - DIARRHOEA [None]
  - HYPOTENSION [None]
  - MUCOSAL INFLAMMATION [None]
  - RENAL FAILURE [None]
  - SEPSIS [None]
